FAERS Safety Report 6660188-9 (Version None)
Quarter: 2010Q1

REPORT INFORMATION
  Report Type: 
  Country: None (occurrence: None)
  Receive Date: 20100331
  Receipt Date: 20100305
  Transmission Date: 20100710
  Serious: No
  Sender: FDA-Public Use
  Company Number: 2009BI024250

PATIENT
  Age: 38 Year
  Sex: Female

DRUGS (3)
  1. TYSABRI [Suspect]
     Indication: MULTIPLE SCLEROSIS
     Route: 042
     Dates: start: 20070901, end: 20071001
  2. TYSABRI [Suspect]
     Route: 042
     Dates: start: 20090101, end: 20090201
  3. TYSABRI [Suspect]
     Route: 042
     Dates: start: 20090601

REACTIONS (5)
  - ASTHENIA [None]
  - BALANCE DISORDER [None]
  - COORDINATION ABNORMAL [None]
  - GAIT DISTURBANCE [None]
  - PAIN [None]
